FAERS Safety Report 26049665 (Version 1)
Quarter: 2025Q4

REPORT INFORMATION
  Report Type: Report from Study
  Country: CN (occurrence: CN)
  Receive Date: 20251115
  Receipt Date: 20251115
  Transmission Date: 20260118
  Serious: Yes (Other)
  Sender: ALEXION PHARMACEUTICALS
  Company Number: CN-AstraZeneca-CH-00982926A

PATIENT
  Age: 8 Year
  Sex: Female
  Weight: 19 kg

DRUGS (2)
  1. KOSELUGO [Suspect]
     Active Substance: SELUMETINIB
     Indication: Neurofibromatosis
     Dosage: 20 MILLIGRAM, BID
     Dates: start: 202507
  2. COSYNTROPIN [Suspect]
     Active Substance: COSYNTROPIN
     Indication: Neurofibromatosis
     Dosage: 20 MILLIGRAM, BID
     Dates: start: 202507

REACTIONS (3)
  - Myocardial necrosis marker increased [Unknown]
  - Subcutaneous haematoma [Not Recovered/Not Resolved]
  - Gingival bleeding [Recovered/Resolved]
